FAERS Safety Report 19035980 (Version 1)
Quarter: 2021Q1

REPORT INFORMATION
  Report Type: Spontaneous
  Country: NL (occurrence: NL)
  Receive Date: 20210321
  Receipt Date: 20210321
  Transmission Date: 20210420
  Serious: Yes (Other)
  Sender: FDA-Public Use
  Company Number: NL-TEVA-2021-NL-1891885

PATIENT
  Age: 59 Year
  Sex: Female
  Weight: 72 kg

DRUGS (2)
  1. ACETYLSALICYLZUUR TABLET  80MG / BRAND NAME NOT SPECIFIED [Concomitant]
     Active Substance: ASPIRIN
     Dosage: 80 MG (MILLIGRAM),THERAPY START DATE :ASKU,THERAPY END DATE :ASKU
  2. DILTIAZEM TABLET 60MG / BRAND NAME NOT SPECIFIED [Suspect]
     Active Substance: DILTIAZEM
     Indication: CHEST PAIN
     Dosage: 3 DOSAGE FORMS DAILY;
     Dates: start: 202101, end: 20210222

REACTIONS (3)
  - Constipation [Not Recovered/Not Resolved]
  - Arrhythmia [Not Recovered/Not Resolved]
  - Nausea [Not Recovered/Not Resolved]

NARRATIVE: CASE EVENT DATE: 20210118
